FAERS Safety Report 5946682-4 (Version None)
Quarter: 2008Q4

REPORT INFORMATION
  Report Type: 
  Country: None (occurrence: None)
  Receive Date: 20081110
  Receipt Date: 20080814
  Transmission Date: 20090506
  Serious: No
  Sender: FDA-Public Use
  Company Number: A0742633A

PATIENT
  Age: 59 Year
  Sex: Female

DRUGS (15)
  1. ALTABAX [Suspect]
     Dosage: 1APP TWICE PER DAY
     Route: 061
     Dates: start: 20080812
  2. PREDNISOLONE [Concomitant]
  3. METHOTREXATE [Concomitant]
  4. FOLIC ACID [Concomitant]
  5. LIPITOR [Concomitant]
  6. XANAX [Concomitant]
  7. PREDNISOLONE [Concomitant]
  8. ACTONEL [Concomitant]
  9. PAXIL [Concomitant]
  10. RELAFEN [Concomitant]
  11. NEXIUM [Concomitant]
  12. TIAZAC [Concomitant]
  13. CALCIUM [Concomitant]
  14. ASPIRIN [Concomitant]
  15. MAGNESIUM SULFATE [Concomitant]
     Dosage: 400MG TWICE PER DAY

REACTIONS (1)
  - APPLICATION SITE IRRITATION [None]
